FAERS Safety Report 12326623 (Version 2)
Quarter: 2016Q2

REPORT INFORMATION
  Report Type: Spontaneous
  Country: LK (occurrence: LK)
  Receive Date: 20160503
  Receipt Date: 20160510
  Transmission Date: 20160815
  Serious: Yes (Death, Other)
  Sender: FDA-Public Use
  Company Number: LK-CIPLA-2016LK04418

PATIENT

DRUGS (6)
  1. WARFARIN SODIUM. [Suspect]
     Active Substance: WARFARIN SODIUM
     Indication: DEEP VEIN THROMBOSIS
     Dosage: 7 MG, QD
     Route: 048
  2. CLARITHROMYCIN. [Interacting]
     Active Substance: CLARITHROMYCIN
     Indication: MYCOPLASMA INFECTION
     Dosage: UNK
     Route: 042
  3. ENOXAPARIN [Interacting]
     Active Substance: ENOXAPARIN
     Indication: DEEP VEIN THROMBOSIS
     Dosage: UNK
     Route: 058
  4. WARFARIN SODIUM. [Interacting]
     Active Substance: WARFARIN SODIUM
     Dosage: 15 MG, QD
     Route: 048
  5. WARFARIN SODIUM. [Interacting]
     Active Substance: WARFARIN SODIUM
     Dosage: UP TO 15 MG PER DAY
     Route: 048
  6. RIFAMPICIN [Interacting]
     Active Substance: RIFAMPIN
     Indication: PULMONARY TUBERCULOSIS
     Dosage: UNK
     Route: 065

REACTIONS (6)
  - Pulmonary embolism [Fatal]
  - Anticoagulation drug level below therapeutic [Unknown]
  - Hypercoagulation [Unknown]
  - Drug interaction [Unknown]
  - Treatment noncompliance [Unknown]
  - Condition aggravated [Unknown]
